FAERS Safety Report 14673690 (Version 1)
Quarter: 2018Q1

REPORT INFORMATION
  Report Type: Spontaneous
  Country: US (occurrence: US)
  Receive Date: 20180323
  Receipt Date: 20180323
  Transmission Date: 20180509
  Serious: No
  Sender: FDA-Public Use
  Company Number: US-ELI_LILLY_AND_COMPANY-US201802011022

PATIENT
  Age: 88 Year
  Sex: Female

DRUGS (2)
  1. HUMALOG [Suspect]
     Active Substance: INSULIN LISPRO
     Indication: PRODUCT USED FOR UNKNOWN INDICATION
     Dosage: UNK, PRN
     Route: 065
     Dates: start: 2014
  2. TOUJEO [Suspect]
     Active Substance: INSULIN GLARGINE
     Indication: DIABETES MELLITUS
     Dosage: 8 U, DAILY
     Route: 065
     Dates: start: 201801

REACTIONS (7)
  - Cough [Recovered/Resolved]
  - Pain in extremity [Unknown]
  - Drug ineffective [Unknown]
  - Blood glucose increased [Unknown]
  - Erythema nodosum [Not Recovered/Not Resolved]
  - Vomiting [Recovered/Resolved]
  - Limb asymmetry [Unknown]

NARRATIVE: CASE EVENT DATE: 201801
